FAERS Safety Report 5837915-3 (Version None)
Quarter: 2008Q3

REPORT INFORMATION
  Report Type: 
  Country: None (occurrence: None)
  Receive Date: 20080808
  Receipt Date: 20080806
  Transmission Date: 20090109
  Serious: Yes (Other)
  Sender: FDA-Public Use
  Company Number: CH-BRISTOL-MYERS SQUIBB COMPANY-14277222

PATIENT
  Age: 69 Year
  Sex: Female

DRUGS (6)
  1. HYDROXYUREA [Suspect]
     Indication: THROMBOCYTHAEMIA
     Dosage: 500 MG DAILY,3X/WEEK
     Route: 048
     Dates: start: 20080208
  2. SALOFALK [Concomitant]
     Indication: COLITIS ULCERATIVE
  3. CORTICOSTEROID [Concomitant]
     Indication: COLITIS ULCERATIVE
  4. CYCLOSPORINE [Concomitant]
     Indication: COLITIS ULCERATIVE
  5. BACTRIM [Concomitant]
  6. LIQUAEMIN INJ [Concomitant]

REACTIONS (1)
  - ENTEROCOLITIS HAEMORRHAGIC [None]
